FAERS Safety Report 6208232-7 (Version None)
Quarter: 2009Q2

REPORT INFORMATION
  Report Type: 
  Country: None (occurrence: None)
  Receive Date: 20090529
  Receipt Date: 20090521
  Transmission Date: 20091009
  Serious: Yes (Hospitalization)
  Sender: FDA-Public Use
  Company Number: US-CELGENEUS-163-21880-09051507

PATIENT
  Sex: Female

DRUGS (4)
  1. REVLIMID [Suspect]
     Indication: MULTIPLE MYELOMA
     Route: 048
     Dates: start: 20090501
  2. REVLIMID [Suspect]
     Route: 048
     Dates: start: 20090101, end: 20090201
  3. REVLIMID [Suspect]
     Route: 048
     Dates: start: 20090201, end: 20090301
  4. REVLIMID [Suspect]
     Dosage: 10-15MG
     Route: 048
     Dates: start: 20090301, end: 20090501

REACTIONS (2)
  - NECK PAIN [None]
  - NERVE COMPRESSION [None]
